FAERS Safety Report 14378815 (Version 9)
Quarter: 2025Q1

REPORT INFORMATION
  Report Type: Report from Study
  Country: CA (occurrence: CA)
  Receive Date: 20180112
  Receipt Date: 20250301
  Transmission Date: 20250409
  Serious: Yes (Hospitalization)
  Sender: ROCHE
  Company Number: CA-ROCHE-2051627

PATIENT
  Age: 52 Year
  Sex: Female
  Weight: 98 kg

DRUGS (18)
  1. LITHIUM [Suspect]
     Active Substance: LITHIUM
     Indication: Product used for unknown indication
     Route: 065
  2. ACTEMRA [Interacting]
     Active Substance: TOCILIZUMAB
     Indication: Rheumatoid arthritis
     Route: 042
     Dates: start: 20150811, end: 20151201
  3. ACTEMRA [Interacting]
     Active Substance: TOCILIZUMAB
     Route: 042
     Dates: start: 20150326, end: 20161206
  4. ACTEMRA [Interacting]
     Active Substance: TOCILIZUMAB
     Route: 042
     Dates: start: 20170105, end: 20180530
  5. ACTEMRA [Interacting]
     Active Substance: TOCILIZUMAB
     Route: 042
     Dates: start: 20200205
  6. ACTEMRA [Interacting]
     Active Substance: TOCILIZUMAB
     Route: 042
     Dates: start: 2020
  7. ACTEMRA [Interacting]
     Active Substance: TOCILIZUMAB
     Route: 042
  8. ACTEMRA [Interacting]
     Active Substance: TOCILIZUMAB
     Route: 042
  9. ACTEMRA [Interacting]
     Active Substance: TOCILIZUMAB
     Route: 042
  10. ACTEMRA [Interacting]
     Active Substance: TOCILIZUMAB
     Route: 042
  11. ACTEMRA [Interacting]
     Active Substance: TOCILIZUMAB
     Route: 042
  12. ACTEMRA [Interacting]
     Active Substance: TOCILIZUMAB
     Route: 042
  13. ACTEMRA [Interacting]
     Active Substance: TOCILIZUMAB
     Route: 042
     Dates: start: 20160526, end: 20161206
  14. LIPITOR [Concomitant]
     Active Substance: ATORVASTATIN CALCIUM
  15. METHOTREXATE [Concomitant]
     Active Substance: METHOTREXATE
     Indication: Product used for unknown indication
  16. SULFASALAZINE [Concomitant]
     Active Substance: SULFASALAZINE
     Indication: Product used for unknown indication
  17. CELEBREX [Concomitant]
     Active Substance: CELECOXIB
     Indication: Product used for unknown indication
  18. ABILIFY [Concomitant]
     Active Substance: ARIPIPRAZOLE
     Indication: Product used for unknown indication

REACTIONS (9)
  - Mania [Recovered/Resolved]
  - Weight abnormal [Unknown]
  - Contusion [Unknown]
  - Drug interaction [Unknown]
  - Heart rate decreased [Unknown]
  - Blood pressure systolic increased [Unknown]
  - Weight increased [Unknown]
  - Weight decreased [Unknown]
  - Blood pressure increased [Unknown]

NARRATIVE: CASE EVENT DATE: 20171229
